FAERS Safety Report 5096708-8 (Version None)
Quarter: 2006Q3

REPORT INFORMATION
  Report Type: 
  Country: None (occurrence: None)
  Receive Date: 20060831
  Receipt Date: 20060815
  Transmission Date: 20061208
  Serious: Yes (Death, Life-Threatening, Hospitalization, Disabling)
  Sender: FDA-Public Use
  Company Number: BG-2006-010115

PATIENT
  Age: 69 Year
  Sex: Female
  Weight: 60 kg

DRUGS (26)
  1. FLUDARA [Suspect]
     Indication: CHRONIC LYMPHOCYTIC LEUKAEMIA
     Dosage: 48 MG, INTRAVENOUS
     Route: 042
     Dates: start: 20051018, end: 20060322
  2. MABCAMPATH 10(ALEMTUZUMAB) AMPULE [Suspect]
     Indication: CHRONIC LYMPHOCYTIC LEUKAEMIA
     Dosage: 30 MG, INTRAVENOUS
     Route: 042
     Dates: start: 20051018, end: 20060322
  3. RINGER (CALCIUM CHLORIDE DIHYDRATE) [Concomitant]
  4. ETHAMSYLATE (ETAMSILATE) [Concomitant]
  5. FAMOTIDINE [Concomitant]
  6. PLATELET CONCENTRATE (PLATELETS, HUMAN BLOOD) [Concomitant]
  7. RED BLOOD CELLS [Concomitant]
  8. METHYLPREDNISOLONE [Concomitant]
  9. PLASMA [Concomitant]
  10. MEDOCEF (CEFOPERAZONE SODIUM) [Concomitant]
  11. NOVPHILLIN (CROMOGLICATE SODIUM) [Concomitant]
  12. DEXAMETHASONE TAB [Concomitant]
  13. BROMHEXIN (BROMHEXINE) [Concomitant]
  14. TAVIPEC (EXPECTORANT) (PICEA ABIES AETHEROLEUM) [Concomitant]
  15. EGILOK (METOPROLOL) [Concomitant]
  16. PREDNISOLONE F [Concomitant]
  17. AZATRIL (AZITHROMYCIN) [Concomitant]
  18. FUNGOLON (FLUCONAZOLE) [Concomitant]
  19. NYTROLONE (PENTAERITHRITYL TETRANITRATE) [Concomitant]
  20. DIGOXIN [Concomitant]
  21. SALINE, 0.9% [Concomitant]
  22. GRANOCYTE (LENOGRASTIM) [Concomitant]
  23. SOLU-MEDROL [Concomitant]
  24. DEXTROSE 5% [Concomitant]
  25. CORTICOSTEROIDS [Concomitant]
  26. VITAMINS [Concomitant]

REACTIONS (23)
  - ANOREXIA [None]
  - ANTI-ERYTHROCYTE ANTIBODY POSITIVE [None]
  - APHTHOUS STOMATITIS [None]
  - ASTHENIA [None]
  - BLOOD CREATININE INCREASED [None]
  - BLOOD URIC ACID INCREASED [None]
  - DERMATITIS EXFOLIATIVE [None]
  - DRUG INEFFECTIVE [None]
  - DYSPHAGIA [None]
  - ECCHYMOSIS [None]
  - EMPHYSEMA [None]
  - EPISTAXIS [None]
  - GASTROINTESTINAL HAEMORRHAGE [None]
  - GENERAL PHYSICAL HEALTH DETERIORATION [None]
  - HEPATITIS [None]
  - HYPERHIDROSIS [None]
  - MUCOSAL INFLAMMATION [None]
  - PANCYTOPENIA [None]
  - PETECHIAE [None]
  - PLEURAL FIBROSIS [None]
  - PNEUMONIA [None]
  - SHOCK [None]
  - SOMNOLENCE [None]
